FAERS Safety Report 5089056-3 (Version None)
Quarter: 2006Q3

REPORT INFORMATION
  Report Type: 
  Country: None (occurrence: None)
  Receive Date: 20060822
  Receipt Date: 20060712
  Transmission Date: 20061208
  Serious: Yes (Death, Hospitalization)
  Sender: FDA-Public Use
  Company Number: 2006072624

PATIENT
  Age: 56 Year
  Sex: Male
  Weight: 145.151 kg

DRUGS (14)
  1. CELEBREX [Suspect]
     Indication: ARTHRITIS
     Dosage: (200 MG, 2 IN 1 D)
     Dates: start: 19990330, end: 20030601
  2. ALBUTEROL [Concomitant]
  3. LOTENSIN [Concomitant]
  4. DYAZIDE [Concomitant]
  5. RANITIDINE HYDROCHLORIDE (RANITDINE HYDROCHLORIDE) [Concomitant]
  6. WARFARIN SODIUM [Concomitant]
  7. CLOPIDOGREL BISULFATE [Concomitant]
  8. DILTIAZEM [Concomitant]
  9. METOPROLOL (METOPROLOL) [Concomitant]
  10. RABEPRAZOLE SODIUM [Concomitant]
  11. VERAPAMIL HCL [Concomitant]
  12. TERAZOSIN (TERAZOSIN) [Concomitant]
  13. LORAZEPAM [Concomitant]
  14. HYDROCHLOROTHIAZIDE [Concomitant]

REACTIONS (12)
  - ABDOMINAL DISCOMFORT [None]
  - ASTHENIA [None]
  - ATRIAL FIBRILLATION [None]
  - CARDIO-RESPIRATORY ARREST [None]
  - DIZZINESS [None]
  - DYSPNOEA [None]
  - HEART RATE INCREASED [None]
  - HYPOTENSION [None]
  - MYOCARDIAL INFARCTION [None]
  - NAUSEA [None]
  - PALPITATIONS [None]
  - PULMONARY EMBOLISM [None]
